FAERS Safety Report 7576569-5 (Version None)
Quarter: 2011Q2

REPORT INFORMATION
  Report Type: 
  Country: None (occurrence: None)
  Receive Date: 20110628
  Receipt Date: 20110614
  Transmission Date: 20111010
  Serious: Yes (Hospitalization)
  Sender: FDA-Public Use
  Company Number: JP-TYCO HEALTHCARE/MALLINCKRODT-T201101170

PATIENT
  Sex: Male
  Weight: 54.75 kg

DRUGS (12)
  1. MORPHINE [Concomitant]
     Indication: ANALGESIC THERAPY
     Dosage: 10 MG, PRN
  2. AMLODIPINE [Concomitant]
     Indication: BLOOD PRESSURE INCREASED
     Dosage: 5 MG, PRN
  3. PURSENNID                          /01627401/ [Concomitant]
     Dosage: 24 MG, QD
     Dates: start: 20110523
  4. CEPHADOL [Concomitant]
     Indication: DIZZINESS
     Dosage: 25 MG, PRN
     Dates: start: 20110601
  5. LANSOPRAZOLE [Concomitant]
     Dosage: 15 MG, QD
  6. TRAVELMIN                          /00517301/ [Concomitant]
     Dosage: 5 MG, TID
  7. RINDERON                           /00008501/ [Concomitant]
     Dosage: 2 MG, BID
     Dates: start: 20110523
  8. METHADONE HCL [Suspect]
     Dosage: 5 MG, TID
     Route: 048
     Dates: start: 20110521, end: 20110524
  9. MUCOSTA [Concomitant]
     Dosage: 100 MG, TID
  10. MAGMITT [Concomitant]
     Dosage: 330 MG, TID
     Dates: start: 20110523
  11. LAXOBERON [Concomitant]
     Indication: CONSTIPATION
     Dosage: ADEQUATE DOSE FOR CONSTIPATION
     Dates: start: 20110523
  12. METHADONE HCL [Suspect]
     Indication: CANCER PAIN
     Dosage: 10 MG, BID
     Route: 048
     Dates: start: 20110525

REACTIONS (3)
  - MALAISE [None]
  - C-REACTIVE PROTEIN INCREASED [None]
  - PYREXIA [None]
